FAERS Safety Report 8760324 (Version 1)
Quarter: 2012Q4

REPORT INFORMATION
  Report Type: Spontaneous
  Country: US (occurrence: None)
  Receive Date: 20120829
  Receipt Date: 20120829
  Transmission Date: 20130627
  Serious: Yes (Life-Threatening, Hospitalization)
  Sender: FDA-Public Use
  Company Number: None

PATIENT
  Sex: Male
  Weight: 12.7 kg

DRUGS (2)
  1. ACETAMINOPHEN/CODEINE TABLETS [Suspect]
  2. ACETAMINOPHEN/CODEINE TABLETS [Suspect]

REACTIONS (2)
  - Respiratory failure [None]
  - Drug hypersensitivity [None]
